FAERS Safety Report 8588301-7 (Version None)
Quarter: 2012Q3

REPORT INFORMATION
  Report Type: 
  Country: None (occurrence: None)
  Receive Date: 20120813
  Receipt Date: 20120731
  Transmission Date: 20120928
  Serious: Yes (Other)
  Sender: FDA-Public Use
  Company Number: US-ELI_LILLY_AND_COMPANY-US201208000699

PATIENT
  Sex: Female

DRUGS (3)
  1. COUMADIN [Concomitant]
     Dosage: 10 MG, QD
  2. CYMBALTA [Suspect]
     Indication: DEPRESSION
     Dosage: 60 MG, UNKNOWN
  3. COUMADIN [Concomitant]
     Dosage: 15 MG, QD

REACTIONS (1)
  - HYPERCOAGULATION [None]
